FAERS Safety Report 5487063-X (Version None)
Quarter: 2007Q4

REPORT INFORMATION
  Report Type: 
  Country: None (occurrence: None)
  Receive Date: 20071016
  Receipt Date: 20071010
  Transmission Date: 20080405
  Serious: Yes (Hospitalization)
  Sender: FDA-Public Use
  Company Number: US-ASTRAZENECA-2007UW23468

PATIENT
  Age: 66 Year
  Sex: Female
  Weight: 88.6 kg

DRUGS (2)
  1. SEROQUEL [Suspect]
     Route: 048
  2. DEPAKOTE [Suspect]

REACTIONS (2)
  - ABASIA [None]
  - OVERDOSE [None]
